FAERS Safety Report 23623852 (Version 5)
Quarter: 2024Q2

REPORT INFORMATION
  Report Type: Spontaneous
  Country: US (occurrence: US)
  Receive Date: 20240312
  Receipt Date: 20240501
  Transmission Date: 20240716
  Serious: No
  Sender: FDA-Public Use
  Company Number: US-PFIZER INC-202400060599

PATIENT
  Age: 79 Year
  Sex: Male
  Weight: 95.238 kg

DRUGS (1)
  1. PAXLOVID [Suspect]
     Active Substance: NIRMATRELVIR\RITONAVIR
     Indication: COVID-19 immunisation
     Dosage: UNK UNK, 1X/DAY
     Route: 048

REACTIONS (4)
  - Disease recurrence [Unknown]
  - COVID-19 [Unknown]
  - Therapeutic product effect incomplete [Unknown]
  - Off label use [Unknown]
